FAERS Safety Report 5845964 (Version 4)
Quarter: 2019Q3

REPORT INFORMATION
  Report Type: Spontaneous
  Country: FI (occurrence: FI)
  Receive Date: 20050718
  Receipt Date: 20190919
  Transmission Date: 20191005
  Serious: Yes (Death, Hospitalization)
  Sender: FDA-Public Use
  Company Number: GXKR2005FI01309

PATIENT
  Age: 76 Year
  Sex: Male

DRUGS (19)
  1. FLUCONAZOLE. [Interacting]
     Active Substance: FLUCONAZOLE
     Indication: GRAFT INFECTION
     Dosage: 150 MG, QD
     Route: 048
     Dates: start: 20040525
  2. FLUCONAZOLE. [Interacting]
     Active Substance: FLUCONAZOLE
     Indication: PNEUMONIA
  3. DOPAMINE [Concomitant]
     Active Substance: DOPAMINE HYDROCHLORIDE
     Indication: PRODUCT USED FOR UNKNOWN INDICATION
     Dosage: 150 MG, QD
     Route: 042
  4. TAVANIC [Concomitant]
     Active Substance: LEVOFLOXACIN
     Indication: PRODUCT USED FOR UNKNOWN INDICATION
     Dosage: UNK
     Route: 048
  5. ATORVASTATIN [Suspect]
     Active Substance: ATORVASTATIN
     Indication: HYPERLIPIDAEMIA
     Dosage: 40 MG, QD
     Route: 048
     Dates: start: 20040507, end: 20040523
  6. BISOPROLOL [Concomitant]
     Active Substance: BISOPROLOL
     Indication: HYPERTENSION
     Dosage: 5 MG, QD
     Route: 048
  7. FUROSEMIDE. [Concomitant]
     Active Substance: FUROSEMIDE
     Indication: PRODUCT USED FOR UNKNOWN INDICATION
     Route: 042
  8. ADRENALINE [Concomitant]
     Active Substance: EPINEPHRINE
     Indication: PRODUCT USED FOR UNKNOWN INDICATION
     Route: 041
  9. NORADRENALINE [Concomitant]
     Active Substance: NOREPINEPHRINE
     Indication: PRODUCT USED FOR UNKNOWN INDICATION
     Dosage: UNK
     Route: 065
  10. DIGOXIN. [Concomitant]
     Active Substance: DIGOXIN
     Dosage: 0.13 MG, QD
     Route: 065
  11. WARFARIN [Concomitant]
     Active Substance: WARFARIN
     Indication: GRAFT INFECTION
     Dosage: 2.5 - 5 MG, QD
     Route: 048
  12. DIGOXIN. [Concomitant]
     Active Substance: DIGOXIN
     Indication: PRODUCT USED FOR UNKNOWN INDICATION
     Dosage: .125 MG, QD
     Route: 065
  13. PREDNISOLONE. [Concomitant]
     Active Substance: PREDNISOLONE
     Indication: PRODUCT USED FOR UNKNOWN INDICATION
     Dosage: 75 MG, QD  (40 MG DAILY)
     Route: 065
     Dates: start: 20040523
  14. DOBUTAMINE [Concomitant]
     Active Substance: DOBUTAMINE HYDROCHLORIDE
     Indication: PRODUCT USED FOR UNKNOWN INDICATION
     Route: 041
  15. ESOMEPRAZOLE. [Concomitant]
     Active Substance: ESOMEPRAZOLE MAGNESIUM
     Indication: PRODUCT USED FOR UNKNOWN INDICATION
     Dosage: 40 MG, QD
     Route: 048
  16. PRAVASTATIN. [Concomitant]
     Active Substance: PRAVASTATIN
     Indication: LOW DENSITY LIPOPROTEIN INCREASED
     Dosage: 40 MG, QD
     Route: 065
  17. PRAVASTATIN. [Concomitant]
     Active Substance: PRAVASTATIN
     Dosage: 80 MG, QD
     Route: 065
  18. DOXYCYCLINE. [Concomitant]
     Active Substance: DOXYCYCLINE
     Indication: DEVICE RELATED INFECTION
     Dosage: 150 MG, QD
     Route: 048
  19. FUSIDIC ACID [Concomitant]
     Active Substance: FUSIDIC ACID
     Indication: DEVICE RELATED INFECTION
     Dosage: 1000 MG, QD
     Route: 065

REACTIONS (13)
  - Drug interaction [Fatal]
  - Dyspnoea [Unknown]
  - International normalised ratio increased [Fatal]
  - Oliguria [Fatal]
  - Multiple organ dysfunction syndrome [Fatal]
  - Cardiomegaly [Fatal]
  - Pulmonary congestion [Fatal]
  - Rhabdomyolysis [Fatal]
  - Hypotension [Unknown]
  - Anuria [Fatal]
  - Renal failure [Fatal]
  - Myopathy [Fatal]
  - Fatigue [Unknown]

NARRATIVE: CASE EVENT DATE: 20040523
